FAERS Safety Report 7775137-X (Version None)
Quarter: 2011Q3

REPORT INFORMATION
  Report Type: 
  Country: None (occurrence: None)
  Receive Date: 20110923
  Receipt Date: 20110915
  Transmission Date: 20111222
  Serious: Yes (Other)
  Sender: FDA-Public Use
  Company Number: DE-GENENTECH-324274

PATIENT
  Sex: Female

DRUGS (5)
  1. MABTHERA [Suspect]
     Indication: RHEUMATOID ARTHRITIS
     Dosage: 1000 MG, UNK
     Route: 042
     Dates: start: 20100714
  2. PARLODEL [Concomitant]
     Indication: GASTRITIS EROSIVE
     Dosage: UNK
     Dates: start: 20090101
  3. BONIVA [Concomitant]
     Indication: OSTEOPOROSIS
     Dosage: 3 MG, UNK
     Route: 042
     Dates: start: 20090101
  4. PREDNISONE [Concomitant]
     Indication: RHEUMATOID ARTHRITIS
     Dosage: 5 MG, UNK
     Route: 048
  5. METOPROLOL SUCCINATE [Concomitant]
     Indication: SUPRAVENTRICULAR EXTRASYSTOLES
     Dosage: 47.5 MG, UNK
     Route: 048
     Dates: start: 20090101

REACTIONS (1)
  - ALOPECIA [None]
